FAERS Safety Report 13806622 (Version 2)
Quarter: 2017Q3

REPORT INFORMATION
  Report Type: Spontaneous
  Country: CH (occurrence: CH)
  Receive Date: 20170728
  Receipt Date: 20170807
  Transmission Date: 20171127
  Serious: Yes (Hospitalization)
  Sender: FDA-Public Use
  Company Number: CH-PFIZER INC-2017320995

PATIENT
  Age: 67 Year
  Sex: Female

DRUGS (7)
  1. KEPPRA [Concomitant]
     Active Substance: LEVETIRACETAM
     Dosage: 500 MG, 2X/DAY
     Route: 048
  2. DISTRANEURIN /00027501/ [Concomitant]
     Active Substance: CLOMETHIAZOLE
     Dosage: 192 MG, 1X/DAY
     Route: 048
  3. REMERON [Suspect]
     Active Substance: MIRTAZAPINE
     Dosage: 30 MG, 1X/DAY
     Route: 048
  4. TEMESTA EXPIDET [Suspect]
     Active Substance: LORAZEPAM
     Dosage: 3.75 MG, 1X/DAY
     Route: 048
  5. REMERON [Suspect]
     Active Substance: MIRTAZAPINE
     Dosage: 15 MG, 1X/DAY
     Route: 048
     Dates: end: 20170713
  6. LEXOTANIL [Suspect]
     Active Substance: BROMAZEPAM
     Dosage: 1.5MG 1X/DAY
     Route: 048
  7. STILNOX [Concomitant]
     Active Substance: ZOLPIDEM TARTRATE
     Dosage: 10 MG, 1X/DAY
     Route: 048

REACTIONS (7)
  - Malaise [Recovering/Resolving]
  - Asthenia [Recovering/Resolving]
  - Appetite disorder [Recovering/Resolving]
  - Hyponatraemia [Recovered/Resolved]
  - Presyncope [Recovering/Resolving]
  - Intentional product misuse [Recovered/Resolved]
  - Electrocardiogram QT prolonged [Recovered/Resolved]

NARRATIVE: CASE EVENT DATE: 2017
